FAERS Safety Report 20669900 (Version 1)
Quarter: 2022Q2

REPORT INFORMATION
  Report Type: 
  Country: PR (occurrence: None)
  Receive Date: 20220404
  Receipt Date: 20220404
  Transmission Date: 20220720
  Serious: No
  Sender: FDA-Public Use
  Company Number: PR-BIOVITRUM-2017PR0116

PATIENT
  Sex: Female

DRUGS (1)
  1. ORFADIN [Suspect]
     Active Substance: NITISINONE
     Indication: Tyrosinaemia
     Route: 048
     Dates: start: 20150128

REACTIONS (1)
  - Alpha 1 foetoprotein increased [Unknown]
